FAERS Safety Report 11643681 (Version 1)
Quarter: 2015Q4

REPORT INFORMATION
  Report Type: Spontaneous
  Country: BR (occurrence: BR)
  Receive Date: 20151020
  Receipt Date: 20151020
  Transmission Date: 20160304
  Serious: Yes (Hospitalization)
  Sender: FDA-Public Use
  Company Number: BR-PFIZER INC-2015347569

PATIENT
  Age: 83 Year
  Sex: Female
  Weight: 53.8 kg

DRUGS (6)
  1. ANCORON [Concomitant]
     Active Substance: AMIODARONE HYDROCHLORIDE
     Dosage: 1 TABLET OF AN UNSPECIFIED DOSE, DAILY
     Dates: start: 201509
  2. PANTOPRAZOLE [Concomitant]
     Active Substance: PANTOPRAZOLE SODIUM
     Indication: GASTRIC DISORDER
     Dosage: 1 TABLET OF AN UNSPECIFIED DOSE IN THE MORNING AND IF IT IS NECESSARY AT NIGHT
  3. SOTACOR [Concomitant]
     Active Substance: SOTALOL HYDROCHLORIDE
     Dosage: HALF TABLET OF UNSPECIFIED DOSE, DAILY (AT LUNCH)
     Dates: end: 201509
  4. ALDACTONE [Suspect]
     Active Substance: SPIRONOLACTONE
     Dosage: 1 TABLET OF 25 MG, DAILY
     Route: 048
  5. SOMALGIN CARDIO [Concomitant]
     Active Substance: ASPIRIN\DIHYDROXYALUMINUM AMINOACETATE ANHYDROUS\MAGNESIUM CARBONATE
     Dosage: 4 TABLETS OF UNSPECIFIED DOSE, WEEKLY
     Dates: end: 201509
  6. SELOZOK [Concomitant]
     Active Substance: METOPROLOL SUCCINATE
     Dosage: 1 TABLET OF 25 MG, DAILY
     Dates: start: 201509

REACTIONS (4)
  - Heart rate increased [Unknown]
  - Fatigue [Unknown]
  - Gait disturbance [Unknown]
  - Dyspnoea [Unknown]

NARRATIVE: CASE EVENT DATE: 201507
